FAERS Safety Report 4524231-5 (Version None)
Quarter: 2004Q4

REPORT INFORMATION
  Report Type: 
  Country: None (occurrence: None)
  Receive Date: 20041119
  Receipt Date: 20040910
  Transmission Date: 20050328
  Serious: No
  Sender: FDA-Public Use
  Company Number: PHEH2004US09752

PATIENT
  Age: 42 Year
  Sex: Male

DRUGS (1)
  1. ZELNORM [Suspect]
     Dosage: INTRAOCULAR
     Route: 031
     Dates: start: 20040910

REACTIONS (4)
  - EYE REDNESS [None]
  - MEDICATION ERROR [None]
  - VISION BLURRED [None]
  - VISUAL DISTURBANCE [None]
